FAERS Safety Report 10779427 (Version 1)
Quarter: 2015Q1

REPORT INFORMATION
  Report Type: Spontaneous
  Country: DE (occurrence: DE)
  Receive Date: 20150210
  Receipt Date: 20150210
  Transmission Date: 20150721
  Serious: Yes (Hospitalization)
  Sender: FDA-Public Use
  Company Number: DE-UCBSA-2014020794

PATIENT
  Sex: Male

DRUGS (8)
  1. KEPPRA [Suspect]
     Active Substance: LEVETIRACETAM
     Indication: OFF LABEL USE
     Dosage: 1000 MG, 2X/DAY (BID)
     Route: 048
     Dates: start: 20141227, end: 20150119
  2. LEVETIRACETAM UCB [Suspect]
     Active Substance: LEVETIRACETAM
     Indication: OFF LABEL USE
     Dosage: 500-0-1000 MG, 2X/DAY (BID)
     Route: 048
     Dates: start: 2013, end: 2013
  3. LEVETIRACETAM UCB [Suspect]
     Active Substance: LEVETIRACETAM
     Dosage: 1000-0-1000 MG, 2X/DAY (BID)
     Route: 048
     Dates: end: 20141227
  4. KEPPRA [Suspect]
     Active Substance: LEVETIRACETAM
     Indication: PRODUCT USED FOR UNKNOWN INDICATION
     Dosage: UNK
     Dates: start: 20150120
  5. KEPPRA [Suspect]
     Active Substance: LEVETIRACETAM
     Indication: NEOPLASM MALIGNANT
     Dosage: 750 MG, ONCE DAILY (QD)
     Route: 048
     Dates: start: 2007, end: 2011
  6. LEVETIRACETAM UCB [Suspect]
     Active Substance: LEVETIRACETAM
     Indication: BRAIN NEOPLASM
     Dosage: 750 MG, ONCE DAILY (QD)
     Route: 048
     Dates: start: 2011, end: 2011
  7. KEPPRA [Suspect]
     Active Substance: LEVETIRACETAM
     Dosage: UNK
     Dates: start: 20150120
  8. LEVETIRACETAM UCB [Suspect]
     Active Substance: LEVETIRACETAM
     Indication: EPILEPSY
     Dosage: 500 MG, 2X/DAY (BID)
     Route: 048
     Dates: start: 2011

REACTIONS (17)
  - Headache [Unknown]
  - Aura [Unknown]
  - Breath odour [Unknown]
  - Dry mouth [Unknown]
  - Fatigue [Unknown]
  - Sleep disorder [Unknown]
  - Muscle spasms [Unknown]
  - Hypoaesthesia [Recovered/Resolved]
  - Feeling abnormal [Unknown]
  - Listless [Unknown]
  - Pain [Unknown]
  - Seizure [Recovering/Resolving]
  - Dyspnoea [Unknown]
  - Hyperhidrosis [Unknown]
  - Muscle twitching [Unknown]
  - Drug ineffective [Unknown]
  - Off label use [Unknown]

NARRATIVE: CASE EVENT DATE: 2007
